FAERS Safety Report 4850894-0 (Version None)
Quarter: 2005Q4

REPORT INFORMATION
  Report Type: 
  Country: None (occurrence: None)
  Receive Date: 20051212
  Receipt Date: 20051206
  Transmission Date: 20060501
  Serious: Yes (Death, Hospitalization)
  Sender: FDA-Public Use
  Company Number: FR-GLAXOSMITHKLINE-B0392498A

PATIENT
  Age: 85 Year
  Sex: Female
  Weight: 63 kg

DRUGS (5)
  1. AUGMENTIN [Suspect]
     Indication: PULMONARY INTERSTITIAL EMPHYSEMA SYNDROME
     Route: 048
     Dates: start: 20051020, end: 20051021
  2. BACTRIM [Suspect]
     Indication: PULMONARY INTERSTITIAL EMPHYSEMA SYNDROME
     Route: 048
     Dates: start: 20051018, end: 20051020
  3. LASILIX [Suspect]
     Indication: ESSENTIAL HYPERTENSION
     Dosage: 80MG TWICE PER DAY
     Route: 042
     Dates: start: 20051016, end: 20051017
  4. TAVANIC [Concomitant]
     Indication: PULMONARY INTERSTITIAL EMPHYSEMA SYNDROME
     Dates: start: 20051020
  5. TPN [Concomitant]
     Route: 065
     Dates: start: 20051018

REACTIONS (8)
  - BLISTER [None]
  - BRONCHOPNEUMONIA [None]
  - LUNG INFECTION [None]
  - RASH [None]
  - SKIN DISORDER [None]
  - SKIN LESION [None]
  - SKIN NECROSIS [None]
  - TOXIC SKIN ERUPTION [None]
